FAERS Safety Report 25131912 (Version 1)
Quarter: 2025Q1

REPORT INFORMATION
  Report Type: Spontaneous
  Country: US (occurrence: US)
  Receive Date: 20250327
  Receipt Date: 20250327
  Transmission Date: 20250409
  Serious: No
  Sender: ELI LILLY AND COMPANY
  Company Number: US-ELI_LILLY_AND_COMPANY-US202503023033

PATIENT
  Age: 77 Year
  Sex: Female

DRUGS (2)
  1. REYVOW [Suspect]
     Active Substance: LASMIDITAN
     Indication: Migraine
     Route: 048
     Dates: start: 202405
  2. REYVOW [Suspect]
     Active Substance: LASMIDITAN
     Route: 048
     Dates: start: 20250326

REACTIONS (1)
  - Drug ineffective [Unknown]
